FAERS Safety Report 7897155-3 (Version None)
Quarter: 2011Q4

REPORT INFORMATION
  Report Type: 
  Country: None (occurrence: None)
  Receive Date: 20111103
  Receipt Date: 20111021
  Transmission Date: 20120403
  Serious: Yes (Hospitalization, Other)
  Sender: FDA-Public Use
  Company Number: NSR_00296_2011

PATIENT
  Age: 48 Year
  Sex: Female

DRUGS (1)
  1. LAMOTRIGINE [Suspect]
     Indication: PRODUCT USED FOR UNKNOWN INDICATION
     Dosage: (7.5 G)

REACTIONS (9)
  - NODAL ARRHYTHMIA [None]
  - NEUROTOXICITY [None]
  - TOXICITY TO VARIOUS AGENTS [None]
  - STATUS EPILEPTICUS [None]
  - PULSE ABSENT [None]
  - GRAND MAL CONVULSION [None]
  - HYPOXIC-ISCHAEMIC ENCEPHALOPATHY [None]
  - TACHYCARDIA [None]
  - CARDIOTOXICITY [None]
